FAERS Safety Report 5217681-5 (Version None)
Quarter: 2006Q4

REPORT INFORMATION
  Report Type: 
  Country: None (occurrence: None)
  Receive Date: 20061130
  Receipt Date: 20060815
  Transmission Date: 20070319
  Serious: Yes (Hospitalization, Other)
  Sender: FDA-Public Use
  Company Number: US200601002056

PATIENT
  Age: 50 Year
  Sex: Female
  Weight: 155.6 kg

DRUGS (9)
  1. ZYPREXA [Suspect]
     Indication: DEPRESSION
     Dosage: SEE IMAGE
     Route: 048
     Dates: start: 20020401, end: 20020501
  2. ZYPREXA [Suspect]
     Indication: DEPRESSION
     Dosage: SEE IMAGE
     Route: 048
     Dates: start: 20020501, end: 20030301
  3. ZYPREXA [Suspect]
     Indication: DEPRESSION
     Dosage: SEE IMAGE
     Route: 048
     Dates: start: 20030301, end: 20030401
  4. ZYPREXA [Suspect]
     Indication: DEPRESSION
     Dosage: SEE IMAGE
     Route: 048
     Dates: start: 20030501, end: 20030601
  5. ZYPREXA [Suspect]
     Indication: DEPRESSION
     Dosage: SEE IMAGE
     Route: 048
     Dates: start: 20030601, end: 20031201
  6. ZYPREXA [Suspect]
     Indication: DEPRESSION
     Dosage: SEE IMAGE
     Route: 048
     Dates: start: 20040101
  7. ABILIFY [Concomitant]
  8. RISPERDAL /SWE/(RISPERIDONE) [Concomitant]
  9. WELLBUTRIN [Concomitant]

REACTIONS (3)
  - GLUCOSE TOLERANCE IMPAIRED [None]
  - PANCREATITIS [None]
  - WEIGHT INCREASED [None]
